FAERS Safety Report 10244684 (Version 1)
Quarter: 2014Q2

REPORT INFORMATION
  Report Type: Spontaneous
  Country: JP (occurrence: JP)
  Receive Date: 20140618
  Receipt Date: 20140618
  Transmission Date: 20141212
  Serious: Yes (Disabling, Other)
  Sender: FDA-Public Use
  Company Number: JP-BRISTOL-MYERS SQUIBB COMPANY-21041900

PATIENT
  Age: 55 Year
  Sex: Female

DRUGS (1)
  1. ABILIFY TABS [Suspect]
     Route: 048
     Dates: start: 200805, end: 201008

REACTIONS (3)
  - Motor dysfunction [Unknown]
  - Parkinsonism [Unknown]
  - Tardive dyskinesia [Unknown]
